FAERS Safety Report 10955682 (Version 1)
Quarter: 2015Q1

REPORT INFORMATION
  Report Type: Spontaneous
  Country: US (occurrence: None)
  Receive Date: 20150325
  Receipt Date: 20150325
  Transmission Date: 20150721
  Serious: Yes (Other)
  Sender: FDA-Public Use
  Company Number: None

PATIENT
  Age: 56 Year
  Sex: Male

DRUGS (1)
  1. INTELENCE [Suspect]
     Active Substance: ETRAVIRINE

REACTIONS (3)
  - Extra dose administered [None]
  - Fat redistribution [None]
  - Incorrect dose administered [None]

NARRATIVE: CASE EVENT DATE: 20150220
